FAERS Safety Report 17409632 (Version 1)
Quarter: 2020Q1

REPORT INFORMATION
  Report Type: Spontaneous
  Country: SE (occurrence: SE)
  Receive Date: 20200212
  Receipt Date: 20200212
  Transmission Date: 20200409
  Serious: Yes (Hospitalization)
  Sender: FDA-Public Use
  Company Number: SE-MYLANLABS-2020M1015415

PATIENT
  Sex: Female

DRUGS (4)
  1. NALTREXONE [Suspect]
     Active Substance: NALTREXONE
     Indication: PRODUCT USED FOR UNKNOWN INDICATION
     Dosage: UNK (OK?ND DOS)
     Dates: start: 20190515, end: 20190515
  2. PROPIOMAZINE [Suspect]
     Active Substance: PROPIOMAZINE
     Indication: PRODUCT USED FOR UNKNOWN INDICATION
     Dosage: UNK (OK?ND DOS)
     Route: 048
     Dates: start: 20190515, end: 20190515
  3. VENLAFAXINE [Suspect]
     Active Substance: VENLAFAXINE HYDROCHLORIDE
     Indication: PRODUCT USED FOR UNKNOWN INDICATION
     Dosage: UNK (OK?ND DOS)
     Dates: start: 20190515, end: 20190515
  4. MINIRIN [Suspect]
     Active Substance: DESMOPRESSIN ACETATE
     Indication: PRODUCT USED FOR UNKNOWN INDICATION
     Dosage: UNK
     Dates: start: 20190515, end: 20190515

REACTIONS (8)
  - Snoring [Unknown]
  - Lethargy [Unknown]
  - Dysarthria [Unknown]
  - Fatigue [Unknown]
  - Syncope [Unknown]
  - Miosis [Unknown]
  - Hallucination [Unknown]
  - Intentional overdose [Unknown]

NARRATIVE: CASE EVENT DATE: 20190515
